FAERS Safety Report 4396497-6 (Version None)
Quarter: 2004Q3

REPORT INFORMATION
  Report Type: 
  Country: None (occurrence: None)
  Receive Date: 20040713
  Receipt Date: 20040421
  Transmission Date: 20050211
  Serious: Yes (Hospitalization)
  Sender: FDA-Public Use
  Company Number: DE-MERCK-0404DEU00114

PATIENT
  Age: 70 Year
  Sex: Female
  Weight: 114 kg

DRUGS (5)
  1. EZETIMIBE [Suspect]
     Indication: HYPERLIPIDAEMIA
     Route: 048
     Dates: start: 20030203, end: 20040203
  2. HYDROXYZINE HYDROCHLORIDE [Concomitant]
     Indication: RESTLESSNESS
     Route: 048
     Dates: end: 20040211
  3. MOXONIDINE [Suspect]
     Indication: HYPERTENSION
     Route: 048
     Dates: start: 20031127, end: 20031210
  4. MOXONIDINE [Suspect]
     Route: 048
     Dates: start: 20031211, end: 20040104
  5. MOXONIDINE [Suspect]
     Route: 048
     Dates: start: 20040105, end: 20040211

REACTIONS (4)
  - COLONIC POLYP [None]
  - HAEMOGLOBIN DECREASED [None]
  - HEPATITIS [None]
  - HEPATOMEGALY [None]
